FAERS Safety Report 13225721 (Version 1)
Quarter: 2017Q1

REPORT INFORMATION
  Report Type: Spontaneous
  Country: US (occurrence: US)
  Receive Date: 20170213
  Receipt Date: 20170213
  Transmission Date: 20170428
  Serious: Yes (Hospitalization)
  Sender: FDA-Public Use
  Company Number: US-GLAXOSMITHKLINE-US2017018865

PATIENT
  Age: 76 Year
  Sex: Female

DRUGS (2)
  1. BREO ELLIPTA [Suspect]
     Active Substance: FLUTICASONE FUROATE\VILANTEROL TRIFENATATE
     Indication: CHRONIC OBSTRUCTIVE PULMONARY DISEASE
     Dosage: 1 PUFF(S), QD
     Route: 055
     Dates: start: 201609
  2. PEPCID [Concomitant]
     Active Substance: FAMOTIDINE

REACTIONS (6)
  - Erythema [Not Recovered/Not Resolved]
  - Eye allergy [Not Recovered/Not Resolved]
  - Lung disorder [Not Recovered/Not Resolved]
  - Intentional product misuse [Unknown]
  - Erythema of eyelid [Not Recovered/Not Resolved]
  - Weight decreased [Unknown]

NARRATIVE: CASE EVENT DATE: 201701
